FAERS Safety Report 11238479 (Version 2)
Quarter: 2015Q4

REPORT INFORMATION
  Report Type: Spontaneous
  Country: CA (occurrence: CA)
  Receive Date: 20150705
  Receipt Date: 20151123
  Transmission Date: 20160304
  Serious: Yes (Other)
  Sender: FDA-Public Use
  Company Number: CA-TEVA-575402ACC

PATIENT
  Age: 56 Year
  Sex: Male
  Weight: 79.45 kg

DRUGS (11)
  1. HYDROMORPHONE [Suspect]
     Active Substance: HYDROMORPHONE
     Indication: EPIDIDYMAL CYST REMOVAL
  2. ZINC [Concomitant]
     Active Substance: ZINC\ZINC CHLORIDE
     Route: 065
  3. RISPERIDONE. [Suspect]
     Active Substance: RISPERIDONE
     Route: 065
  4. HYDROMORPHONE [Suspect]
     Active Substance: HYDROMORPHONE
     Indication: HERNIA REPAIR
     Dosage: 10 MILLIGRAM DAILY;
     Route: 048
  5. SWISS ONE MULTI VITAMIN AND MINERAL [Suspect]
     Active Substance: MINERALS\VITAMINS
     Indication: VITAMIN SUPPLEMENTATION
     Route: 048
  6. TYLENOL ARTHRITIS PAIN [Concomitant]
     Active Substance: ACETAMINOPHEN
     Indication: EPIDIDYMAL CYST REMOVAL
  7. ATIVAN [Suspect]
     Active Substance: LORAZEPAM
     Route: 065
  8. METAMUCIL [Concomitant]
     Active Substance: PLANTAGO SEED
     Route: 065
  9. MUSCLE RELAXANTS [Concomitant]
     Active Substance: UNSPECIFIED INGREDIENT
     Route: 065
  10. CYCLOBENZAPRINE [Suspect]
     Active Substance: CYCLOBENZAPRINE
     Route: 065
  11. TYLENOL ARTHRITIS PAIN [Concomitant]
     Active Substance: ACETAMINOPHEN
     Indication: HERNIA REPAIR
     Route: 065

REACTIONS (3)
  - Malaise [Recovering/Resolving]
  - Suicidal ideation [Recovering/Resolving]
  - Nightmare [Recovering/Resolving]
